FAERS Safety Report 7626522-8 (Version None)
Quarter: 2011Q3

REPORT INFORMATION
  Report Type: 
  Country: None (occurrence: None)
  Receive Date: 20110721
  Receipt Date: 20110718
  Transmission Date: 20111222
  Serious: Yes (Hospitalization)
  Sender: FDA-Public Use
  Company Number: FR-TEVA-291112ISR

PATIENT
  Age: 69 Year

DRUGS (1)
  1. DOXORUBICIN HCL [Suspect]
     Indication: HEPATIC NEOPLASM MALIGNANT

REACTIONS (3)
  - ABDOMINAL PAIN UPPER [None]
  - SEPTIC SHOCK [None]
  - LIVER ABSCESS [None]
